FAERS Safety Report 7065448-8 (Version None)
Quarter: 2010Q4

REPORT INFORMATION
  Report Type: 
  Country: None (occurrence: None)
  Receive Date: 20101027
  Receipt Date: 20101021
  Transmission Date: 20110411
  Serious: No
  Sender: FDA-Public Use
  Company Number: US-PFIZER INC-2010134779

PATIENT
  Sex: Female
  Weight: 147 kg

DRUGS (4)
  1. CHANTIX [Suspect]
     Indication: SMOKING CESSATION THERAPY
     Dosage: 0.5 MG, DAILY
     Route: 048
     Dates: start: 20101011
  2. CHANTIX [Suspect]
     Dosage: 1 MG, 2X/DAY
     Route: 048
  3. LOVAZA [Concomitant]
     Indication: APPETITE DISORDER
     Dosage: UNK
  4. FENOFIBRATE [Concomitant]
     Indication: APPETITE DISORDER
     Dosage: UNK

REACTIONS (4)
  - FEAR [None]
  - FEELING ABNORMAL [None]
  - FEELING COLD [None]
  - NAUSEA [None]
